FAERS Safety Report 6145151-9 (Version None)
Quarter: 2009Q2

REPORT INFORMATION
  Report Type: 
  Country: None (occurrence: None)
  Receive Date: 20090406
  Receipt Date: 20090326
  Transmission Date: 20091009
  Serious: Yes (Hospitalization)
  Sender: FDA-Public Use
  Company Number: TR-ELI_LILLY_AND_COMPANY-TR200903007566

PATIENT
  Age: 54 Year
  Sex: Female

DRUGS (4)
  1. HUMALOG MIX 75/25 [Suspect]
     Indication: DIABETES MELLITUS
     Dosage: 66 U, EACH MORNING
     Route: 058
  2. HUMALOG MIX 75/25 [Suspect]
     Dosage: 20 U, DAILY (1/D)
     Route: 058
  3. HUMALOG MIX 75/25 [Suspect]
     Dosage: 40 U, EACH EVENING
     Route: 058
  4. EUTHYROX [Concomitant]
     Indication: GOITRE
     Dosage: UNK UNK, DAILY (1/D)
     Route: 048

REACTIONS (1)
  - BLOOD GLUCOSE INCREASED [None]
